FAERS Safety Report 7111256-9 (Version None)
Quarter: 2010Q4

REPORT INFORMATION
  Report Type: 
  Country: None (occurrence: None)
  Receive Date: 20101118
  Receipt Date: 20100426
  Transmission Date: 20110411
  Serious: Yes (Other)
  Sender: FDA-Public Use
  Company Number: US-PFIZER INC-2010002531

PATIENT
  Sex: Male
  Weight: 195 kg

DRUGS (6)
  1. ZYVOX [Suspect]
     Indication: ENTEROCOCCAL INFECTION
     Dosage: 600 MG, 2X/DAY
     Dates: start: 20091225, end: 20100101
  2. ZYVOX [Suspect]
     Indication: ANTIBIOTIC RESISTANT STAPHYLOCOCCUS TEST
  3. ARIXTRA [Concomitant]
  4. ACETYLSALICYLIC ACID [Concomitant]
  5. ZOSYN [Concomitant]
  6. LEVAQUIN [Concomitant]

REACTIONS (4)
  - PLATELET COUNT DECREASED [None]
  - RENAL FUNCTION TEST ABNORMAL [None]
  - THROMBOCYTOPENIA [None]
  - WHITE BLOOD CELL COUNT INCREASED [None]
